FAERS Safety Report 8927446 (Version 1)
Quarter: 2012Q4

REPORT INFORMATION
  Report Type: 
  Country: US (occurrence: US)
  Receive Date: 20121127
  Receipt Date: 20121127
  Transmission Date: 20130627
  Serious: No
  Sender: FDA-Public Use
  Company Number: US-MYLANLABS-2012S1002994

PATIENT
  Age: 75 Year
  Sex: Female
  Weight: 84.5 kg

DRUGS (4)
  1. AMIODARONE HYDROCHLORIDE [Suspect]
     Indication: ATRIAL FIBRILLATION
     Dosage: Bolus
     Route: 042
     Dates: start: 20120204
  2. AMIODARONE HYDROCHLORIDE [Suspect]
     Indication: ATRIAL FIBRILLATION
     Dosage: Drip with filter
     Route: 042
     Dates: end: 20120206
  3. ANCEF [Concomitant]
     Route: 042
  4. ALBUMIN [Concomitant]
     Route: 042

REACTIONS (1)
  - Injection site extravasation [Not Recovered/Not Resolved]
